FAERS Safety Report 18063957 (Version 2)
Quarter: 2020Q3

REPORT INFORMATION
  Report Type: Spontaneous
  Country: US (occurrence: US)
  Receive Date: 20200724
  Receipt Date: 20200801
  Transmission Date: 20201103
  Serious: Yes (Life-Threatening, Hospitalization, Other)
  Sender: FDA-Public Use
  Company Number: US-AUROBINDO-AUR-APL-2020-035786

PATIENT
  Age: 60 Year
  Sex: Male

DRUGS (1)
  1. AMIODARONE HYDROCHLORIDE. [Suspect]
     Active Substance: AMIODARONE HYDROCHLORIDE
     Indication: VENTRICULAR TACHYCARDIA
     Dosage: 200 MILLIGRAM, ONCE A DAY
     Route: 065

REACTIONS (10)
  - Electrocardiogram QT prolonged [Unknown]
  - Palpitations [Unknown]
  - Vomiting [Unknown]
  - Torsade de pointes [Recovered/Resolved]
  - Ventricular tachycardia [Unknown]
  - Hypokalaemia [Unknown]
  - Dizziness [Unknown]
  - Hypomagnesaemia [Unknown]
  - Hypophagia [Unknown]
  - Nausea [Unknown]
